FAERS Safety Report 11192288 (Version 1)
Quarter: 2015Q2

REPORT INFORMATION
  Report Type: Spontaneous
  Country: US (occurrence: None)
  Receive Date: 20150615
  Receipt Date: 20150615
  Transmission Date: 20150821
  Serious: Yes (Other)
  Sender: FDA-Public Use
  Company Number: None

PATIENT

DRUGS (1)
  1. IMPLANON [Suspect]
     Active Substance: ETONOGESTREL

REACTIONS (9)
  - Abdominal distension [None]
  - Muscle spasms [None]
  - Nausea [None]
  - Dizziness [None]
  - Menstrual disorder [None]
  - Dyspnoea [None]
  - Asthenia [None]
  - Pelvic pain [None]
  - Hypophagia [None]
